FAERS Safety Report 22526628 (Version 1)
Quarter: 2023Q2

REPORT INFORMATION
  Report Type: Spontaneous
  Country: GR (occurrence: GR)
  Receive Date: 20230606
  Receipt Date: 20230606
  Transmission Date: 20230722
  Serious: Yes (Other)
  Sender: FDA-Public Use
  Company Number: GR-PFIZER INC-202300209839

PATIENT
  Age: 76 Year
  Sex: Female

DRUGS (4)
  1. MEDROL [Suspect]
     Active Substance: METHYLPREDNISOLONE
     Dosage: 2 TABS PER DAY
     Dates: start: 202210
  2. MEDROL [Suspect]
     Active Substance: METHYLPREDNISOLONE
     Dosage: 16 MG, 1X/DAY
  3. MEDROL [Suspect]
     Active Substance: METHYLPREDNISOLONE
     Dosage: 1/4 OF THE TAB
     Dates: end: 202304
  4. FEROSAC [FERROUS GLUCONATE] [Concomitant]
     Indication: Anaemia
     Dosage: UNK

REACTIONS (6)
  - Haematocrit decreased [Not Recovered/Not Resolved]
  - Bone pain [Not Recovered/Not Resolved]
  - Alopecia [Unknown]
  - Feeling cold [Unknown]
  - Back disorder [Unknown]
  - Peripheral swelling [Unknown]

NARRATIVE: CASE EVENT DATE: 20230531
